FAERS Safety Report 10743157 (Version 1)
Quarter: 2015Q1

REPORT INFORMATION
  Report Type: Spontaneous
  Country: US (occurrence: US)
  Receive Date: 20150127
  Receipt Date: 20150127
  Transmission Date: 20150721
  Serious: No
  Sender: FDA-Public Use
  Company Number: US-GLAXOSMITHKLINE-A1053486A

PATIENT

DRUGS (2)
  1. ANTIDEPRESSANTS [Suspect]
     Active Substance: UNSPECIFIED INGREDIENT
     Indication: DEPRESSION
  2. BUPROPION TABLET [Suspect]
     Active Substance: BUPROPION
     Route: 065

REACTIONS (1)
  - Drug ineffective [Unknown]
